FAERS Safety Report 15299826 (Version 1)
Quarter: 2018Q3

REPORT INFORMATION
  Report Type: Spontaneous
  Country: US (occurrence: US)
  Receive Date: 20180808
  Receipt Date: 20180808
  Transmission Date: 20181010
  Serious: Yes (Other)
  Sender: FDA-Public Use
  Company Number: None

PATIENT
  Age: 33 Year
  Sex: Female
  Weight: 72 kg

DRUGS (12)
  1. IMITREX [Concomitant]
     Active Substance: SUMATRIPTAN SUCCINATE
  2. LEVOTHYROXINE. [Concomitant]
     Active Substance: LEVOTHYROXINE
  3. SALTED CARMAEL [Concomitant]
  4. NEOCELL?SUPER COLLAGEN POWDER [Concomitant]
  5. MARSHMALLOW ROOT [Concomitant]
  6. MAGNESIUM [Concomitant]
     Active Substance: MAGNESIUM
  7. MONTELUKAST [Concomitant]
     Active Substance: MONTELUKAST SODIUM
  8. NATURE MADE PRENATAL + DHA [Concomitant]
  9. GOOD SENSE ALL DAY ALLERGY [Suspect]
     Active Substance: CETIRIZINE HYDROCHLORIDE
     Indication: SEASONAL ALLERGY
     Dosage: ?          QUANTITY:1 DF DOSAGE FORM;?
     Route: 048
     Dates: start: 20180630, end: 20180804
  10. MULTIVITAMIN SOFTGELS [Concomitant]
  11. IBUPROFEN. [Concomitant]
     Active Substance: IBUPROFEN
  12. QUEST NUTRITION PROTEIN POWDER [Concomitant]

REACTIONS (6)
  - Arthralgia [None]
  - Drug withdrawal syndrome [None]
  - Headache [None]
  - Migraine [None]
  - Oropharyngeal pain [None]
  - Urticaria [None]

NARRATIVE: CASE EVENT DATE: 20180804
